FAERS Safety Report 16158109 (Version 1)
Quarter: 2019Q2

REPORT INFORMATION
  Report Type: Spontaneous
  Country: GR (occurrence: GR)
  Receive Date: 20190404
  Receipt Date: 20190404
  Transmission Date: 20190711
  Serious: Yes (Other)
  Sender: FDA-Public Use
  Company Number: GR-MYLANLABS-2019M1030578

PATIENT

DRUGS (1)
  1. TENOFOVIR [Suspect]
     Active Substance: TENOFOVIR
     Indication: CHRONIC HEPATITIS B
     Dosage: UNK
     Route: 048

REACTIONS (1)
  - Hepatitis B reactivation [Unknown]
